FAERS Safety Report 20727475 (Version 1)
Quarter: 2022Q2

REPORT INFORMATION
  Report Type: Spontaneous
  Country: US (occurrence: None)
  Receive Date: 20220419
  Receipt Date: 20220419
  Transmission Date: 20220720
  Serious: No
  Sender: FDA-Public Use
  Company Number: US-ROCHE-2810518

PATIENT
  Sex: Female
  Weight: 52.664 kg

DRUGS (8)
  1. AVASTIN [Suspect]
     Active Substance: BEVACIZUMAB
     Indication: Vulval cancer
     Route: 042
     Dates: start: 20210305
  2. ADVAIR DISKUS [Concomitant]
     Active Substance: FLUTICASONE PROPIONATE\SALMETEROL XINAFOATE
     Dates: start: 20210304
  3. CLARITIN [Concomitant]
     Active Substance: LORATADINE
     Route: 048
     Dates: start: 20210406
  4. HYDROCHLOROTHIAZIDE [Concomitant]
     Active Substance: HYDROCHLOROTHIAZIDE
     Dates: start: 20210304
  5. LOSARTAN [Concomitant]
     Active Substance: LOSARTAN
     Dates: start: 20210304
  6. ALPRAZOLAM [Concomitant]
     Active Substance: ALPRAZOLAM
     Route: 048
     Dates: start: 20210406
  7. BENADRYL GEL [Concomitant]
     Active Substance: DIPHENHYDRAMINE HYDROCHLORIDE
     Dates: start: 20210404
  8. FLUCONAZOLE [Concomitant]
     Active Substance: FLUCONAZOLE
     Dates: start: 20210405

REACTIONS (2)
  - Rash [Unknown]
  - Off label use [Unknown]
